FAERS Safety Report 20442450 (Version 1)
Quarter: 2022Q1

REPORT INFORMATION
  Report Type: Spontaneous
  Country: US (occurrence: US)
  Receive Date: 20220208
  Receipt Date: 20220208
  Transmission Date: 20220423
  Serious: No
  Sender: FDA-Public Use
  Company Number: US-ALLERGAN-2119219US

PATIENT
  Age: 63 Year
  Sex: Female
  Weight: 54.422 kg

DRUGS (2)
  1. VIIBRYD [Suspect]
     Active Substance: VILAZODONE HYDROCHLORIDE
     Indication: Major depression
     Dosage: 10 MG, QD, IN THE AM
     Route: 048
     Dates: start: 202104
  2. NEFAZODONE [Suspect]
     Active Substance: NEFAZODONE
     Indication: Product used for unknown indication

REACTIONS (3)
  - Paranoia [Recovered/Resolved]
  - Irritability [Recovered/Resolved]
  - Hypomania [Recovered/Resolved]

NARRATIVE: CASE EVENT DATE: 20210501
